FAERS Safety Report 6973233-8 (Version None)
Quarter: 2010Q3

REPORT INFORMATION
  Report Type: 
  Country: None (occurrence: None)
  Receive Date: 20100909
  Receipt Date: 20100820
  Transmission Date: 20110219
  Serious: Yes (Hospitalization)
  Sender: FDA-Public Use
  Company Number: US-GILEAD-2010-0031506

PATIENT
  Sex: Male
  Weight: 136.2 kg

DRUGS (13)
  1. LETAIRIS [Suspect]
     Indication: PULMONARY ARTERIAL HYPERTENSION
     Route: 048
     Dates: start: 20100806
  2. PRINIVIL [Concomitant]
  3. ZOCOR [Concomitant]
  4. PRILOSEC [Concomitant]
  5. LASIX [Concomitant]
  6. NORVASC [Concomitant]
  7. GLUCOPHAGE [Concomitant]
  8. LANTUS [Concomitant]
  9. LABETALOL HCL [Concomitant]
  10. NADOLOL [Concomitant]
  11. HYDROCHLOROTHIAZIDE [Concomitant]
  12. TIMOLOL [Concomitant]
  13. FERROUS SULFATE [Concomitant]

REACTIONS (1)
  - RENAL FAILURE [None]
